FAERS Safety Report 4654582-5 (Version None)
Quarter: 2005Q2

REPORT INFORMATION
  Report Type: 
  Country: None (occurrence: None)
  Receive Date: 20050503
  Receipt Date: 20050503
  Transmission Date: 20051028
  Serious: Yes (Life-Threatening)
  Sender: FDA-Public Use
  Company Number: None

PATIENT
  Age: 38 Year
  Sex: Female
  Weight: 65.7716 kg

DRUGS (2)
  1. LEVAQUIN [Suspect]
     Indication: SINUSITIS
     Dosage: 500 MG   BY MOUTH
     Route: 048
     Dates: start: 20050429, end: 20050430
  2. LEVAQUIN [Suspect]
     Indication: UPPER RESPIRATORY TRACT INFECTION
     Dosage: 500 MG   BY MOUTH
     Route: 048
     Dates: start: 20050429, end: 20050430

REACTIONS (8)
  - CHILLS [None]
  - DIFFICULTY IN WALKING [None]
  - OEDEMA PERIPHERAL [None]
  - ORAL INTAKE REDUCED [None]
  - ORAL MUCOSAL BLISTERING [None]
  - PAIN IN EXTREMITY [None]
  - PYREXIA [None]
  - SPEECH DISORDER [None]
